FAERS Safety Report 5060209-3 (Version None)
Quarter: 2006Q3

REPORT INFORMATION
  Report Type: 
  Country: None (occurrence: None)
  Receive Date: 20060720
  Receipt Date: 20060706
  Transmission Date: 20061208
  Serious: Yes (Hospitalization)
  Sender: FDA-Public Use
  Company Number: MEDI-0004736

PATIENT
  Age: 27 Month
  Sex: 0

DRUGS (6)
  1. SYNAGIS [Suspect]
     Indication: ANTIVIRAL PROPHYLAXIS
     Dosage: 150 MG, INTRAMUSCULAR; SEE IMAGE
     Route: 030
     Dates: start: 20051017, end: 20060302
  2. SYNAGIS [Suspect]
     Indication: ANTIVIRAL PROPHYLAXIS
     Dosage: 150 MG, INTRAMUSCULAR; SEE IMAGE
     Route: 030
     Dates: start: 20051017
  3. SYNAGIS [Suspect]
     Indication: ANTIVIRAL PROPHYLAXIS
     Dosage: 150 MG, INTRAMUSCULAR; SEE IMAGE
     Route: 030
     Dates: start: 20051116
  4. SYNAGIS [Suspect]
     Indication: ANTIVIRAL PROPHYLAXIS
     Dosage: 150 MG, INTRAMUSCULAR; SEE IMAGE
     Route: 030
     Dates: start: 20051212
  5. SYNAGIS [Suspect]
     Indication: ANTIVIRAL PROPHYLAXIS
     Dosage: 150 MG, INTRAMUSCULAR; SEE IMAGE
     Route: 030
     Dates: start: 20060102
  6. SYNAGIS [Suspect]
     Indication: ANTIVIRAL PROPHYLAXIS
     Dosage: 150 MG, INTRAMUSCULAR; SEE IMAGE
     Route: 030
     Dates: start: 20060202

REACTIONS (1)
  - DIARRHOEA HAEMORRHAGIC [None]
